FAERS Safety Report 6774923-2 (Version None)
Quarter: 2010Q2

REPORT INFORMATION
  Report Type: 
  Country: None (occurrence: None)
  Receive Date: 20100617
  Receipt Date: 20100611
  Transmission Date: 20101027
  Serious: Yes (Hospitalization, Other)
  Sender: FDA-Public Use
  Company Number: DE-AMGEN-UK383240

PATIENT
  Sex: Female
  Weight: 81 kg

DRUGS (1)
  1. NPLATE [Suspect]
     Indication: IDIOPATHIC THROMBOCYTOPENIC PURPURA
     Route: 058
     Dates: start: 20090508, end: 20091203

REACTIONS (3)
  - INFLUENZA [None]
  - PERICARDIAL EFFUSION [None]
  - SYSTEMIC LUPUS ERYTHEMATOSUS [None]
